FAERS Safety Report 4554927-0 (Version None)
Quarter: 2004Q4

REPORT INFORMATION
  Report Type: 
  Country: None (occurrence: None)
  Receive Date: 20041222
  Receipt Date: 20041119
  Transmission Date: 20050328
  Serious: Yes (Hospitalization)
  Sender: FDA-Public Use
  Company Number: 210585

PATIENT
  Age: 47 Year
  Sex: Male
  Weight: 96.1 kg

DRUGS (10)
  1. AVASTIN [Suspect]
     Indication: COLORECTAL CANCER METASTATIC
     Dosage: 300 MG, INTRAVENOUS
     Route: 042
     Dates: start: 20040701, end: 20041001
  2. OXALIPLATIN (OXALIPLATIN) [Concomitant]
  3. LEUCOVORIN (LEUCOVORIN) [Concomitant]
  4. FLUOROURACIL [Concomitant]
  5. DEXAMETHASONE [Concomitant]
  6. MAGNESIUM SULPHATE (MAGNESIUM SULPHATE) [Concomitant]
  7. CALCIUM GLUCONATE [Concomitant]
  8. ALOXI (PALONOSETRON) [Concomitant]
  9. ATIVAN [Concomitant]
  10. HALCION [Concomitant]

REACTIONS (2)
  - ABDOMINAL ABSCESS [None]
  - ENTEROCUTANEOUS FISTULA [None]
